FAERS Safety Report 12423188 (Version 1)
Quarter: 2016Q2

REPORT INFORMATION
  Report Type: Spontaneous
  Country: US (occurrence: None)
  Receive Date: 20160531
  Receipt Date: 20160531
  Transmission Date: 20160815
  Serious: Yes (Disabling)
  Sender: FDA-Public Use
  Company Number: None

PATIENT
  Age: 30 Year
  Sex: Male
  Weight: 99.79 kg

DRUGS (8)
  1. AMPHETAMINE SALTS ER [Suspect]
     Active Substance: AMPHETAMINE ASPARTATE\AMPHETAMINE SULFATE\DEXTROAMPHETAMINE SACCHARATE\DEXTROAMPHETAMINE SULFATE
     Indication: DEPRESSION
     Dosage: 90 CAPSULE(S) TWICE A DAY TAKEN BY MOUTH
     Route: 048
     Dates: start: 20160526, end: 20160527
  2. ADDERALL [Suspect]
     Active Substance: AMPHETAMINE ASPARTATE\AMPHETAMINE SULFATE\DEXTROAMPHETAMINE SACCHARATE\DEXTROAMPHETAMINE SULFATE
     Indication: DEPRESSION
     Dosage: 60 TABLET(S) TWICE A DAY TAKEN BY MOUTH
     Route: 048
     Dates: start: 20160517, end: 20160526
  3. DOXEPIN [Concomitant]
     Active Substance: DOXEPIN
  4. ADDERALL [Concomitant]
     Active Substance: AMPHETAMINE ASPARTATE\AMPHETAMINE SULFATE\DEXTROAMPHETAMINE SACCHARATE\DEXTROAMPHETAMINE SULFATE
  5. TRILEPTAL [Concomitant]
     Active Substance: OXCARBAZEPINE
  6. OMEGA 3 [Concomitant]
     Active Substance: OMEGA-3 FATTY ACIDS
  7. NEURONTIN [Concomitant]
     Active Substance: GABAPENTIN
  8. NAC [Concomitant]

REACTIONS (12)
  - Vision blurred [None]
  - Headache [None]
  - Loss of employment [None]
  - Antisocial behaviour [None]
  - Somnolence [None]
  - Product substitution issue [None]
  - Photophobia [None]
  - Anxiety [None]
  - Diplopia [None]
  - Depression [None]
  - Fatigue [None]
  - Product physical consistency issue [None]

NARRATIVE: CASE EVENT DATE: 20160527
